FAERS Safety Report 9283743 (Version 1)
Quarter: 2013Q2

REPORT INFORMATION
  Report Type: Spontaneous
  Country: DK (occurrence: DK)
  Receive Date: 20130510
  Receipt Date: 20130510
  Transmission Date: 20140414
  Serious: Yes (Hospitalization)
  Sender: FDA-Public Use
  Company Number: PHHY2013DK045909

PATIENT
  Age: 50 Year
  Sex: Male

DRUGS (7)
  1. SALBUTAMOL [Suspect]
     Indication: ASTHMA
  2. BUDESONIDE W/FORMOTEROL FUMARATE [Concomitant]
  3. TERBUTALINE [Concomitant]
  4. RAMIPRIL/HYDROCHLOORTHIAZIDE [Concomitant]
  5. ATENOLOL [Concomitant]
  6. METHYLPREDNISOLONE [Concomitant]
  7. OXYGEN [Concomitant]

REACTIONS (1)
  - Lactic acidosis [Recovered/Resolved]
